FAERS Safety Report 19668132 (Version 1)
Quarter: 2021Q3

REPORT INFORMATION
  Report Type: Spontaneous
  Country: US (occurrence: US)
  Receive Date: 20210806
  Receipt Date: 20210806
  Transmission Date: 20211014
  Serious: No
  Sender: FDA-Public Use
  Company Number: US-TELIGENT, INC-20210600058

PATIENT
  Age: 49 Year
  Sex: Male
  Weight: 108 kg

DRUGS (1)
  1. TRIAMCINOLONE ACETONIDE. [Suspect]
     Active Substance: TRIAMCINOLONE ACETONIDE
     Indication: ERYTHEMA
     Dosage: (ONE TO TWO TIMES A DAY)
     Route: 061
     Dates: start: 20210515

REACTIONS (1)
  - Drug ineffective [Not Recovered/Not Resolved]

NARRATIVE: CASE EVENT DATE: 20210515
